FAERS Safety Report 12558844 (Version 4)
Quarter: 2016Q3

REPORT INFORMATION
  Report Type: Spontaneous
  Country: KR (occurrence: KR)
  Receive Date: 20160715
  Receipt Date: 20160816
  Transmission Date: 20161109
  Serious: Yes (Hospitalization, Other)
  Sender: FDA-Public Use
  Company Number: KR-BAXTER-2016BAX036197

PATIENT
  Age: 49 Year
  Sex: Female
  Weight: 69 kg

DRUGS (4)
  1. HEPARIN [Suspect]
     Active Substance: HEPARIN SODIUM
     Indication: ANTICOAGULANT THERAPY
     Dosage: 2CC/HR, CONTINUOUS INFUSION DURING TREATMENT 2500 IU/HOUR
     Route: 040
     Dates: start: 20160705
  2. NORMAL SALINE [Suspect]
     Active Substance: SODIUM CHLORIDE
     Dosage: PRIMING VOLUME INFUSED AT START OF TREATMENT
     Route: 065
     Dates: start: 20160705
  3. NORMAL SALINE [Suspect]
     Active Substance: SODIUM CHLORIDE
     Indication: DEVICE PRIMING
     Dosage: PRIMING VOLUME USED FOR PRIMING
     Route: 065
     Dates: start: 20160705
  4. BICART 650 [Suspect]
     Active Substance: SODIUM BICARBONATE
     Indication: HAEMODIALYSIS
     Route: 010
     Dates: start: 201511, end: 20160705

REACTIONS (9)
  - Myalgia [Recovered/Resolved]
  - Chest pain [Recovered/Resolved]
  - Chills [Recovered/Resolved]
  - Haemorrhage [Recovered/Resolved]
  - Oedema peripheral [Recovered/Resolved]
  - Haemolysis [Recovered/Resolved]
  - Device leakage [Recovered/Resolved]
  - Headache [Recovered/Resolved]
  - Blood pressure increased [Recovered/Resolved]

NARRATIVE: CASE EVENT DATE: 20160705
